FAERS Safety Report 5053834-7 (Version None)
Quarter: 2006Q3

REPORT INFORMATION
  Report Type: 
  Country: None (occurrence: None)
  Receive Date: 20060718
  Receipt Date: 20060703
  Transmission Date: 20061208
  Serious: Yes (Other)
  Sender: FDA-Public Use
  Company Number: JP-JPN-A200602471

PATIENT
  Sex: Male

DRUGS (2)
  1. ZOVIRAX [Suspect]
     Route: 047
     Dates: start: 20060630, end: 20060703
  2. VALTREX [Suspect]
     Dosage: 500MG TWICE PER DAY
     Route: 048

REACTIONS (3)
  - CORNEAL EPITHELIUM DISORDER [None]
  - IRIS DISORDER [None]
  - OEDEMA [None]
